FAERS Safety Report 21169833 (Version 1)
Quarter: 2022Q3

REPORT INFORMATION
  Report Type: Spontaneous
  Country: US (occurrence: US)
  Receive Date: 20220804
  Receipt Date: 20220804
  Transmission Date: 20221026
  Serious: No
  Sender: FDA-Public Use
  Company Number: US-IDORSIA-000813-2022-US

PATIENT
  Age: 61 Year
  Sex: Male

DRUGS (3)
  1. QUVIVIQ [Suspect]
     Active Substance: DARIDOREXANT
     Indication: Insomnia
     Dosage: 25 MG, QD 30MINUTES BEFORE GOING TO BED WITH ATLEAST 7HRS REMAINING PRIOR TO PLANNED AWAKENING
     Route: 048
     Dates: start: 20220707
  2. FINASTERIDE [Concomitant]
     Active Substance: FINASTERIDE
  3. TESTOSTERONE [Concomitant]
     Active Substance: TESTOSTERONE

REACTIONS (1)
  - Abdominal pain upper [Not Recovered/Not Resolved]

NARRATIVE: CASE EVENT DATE: 20220725
